FAERS Safety Report 6328126-6 (Version None)
Quarter: 2009Q3

REPORT INFORMATION
  Report Type: 
  Country: None (occurrence: None)
  Receive Date: 20090825
  Receipt Date: 20090121
  Transmission Date: 20100115
  Serious: No
  Sender: FDA-Public Use
  Company Number: US-ABBOTT-09P-163-0499266-00

PATIENT
  Sex: Female
  Weight: 59.02 kg

DRUGS (7)
  1. SYNTHROID [Suspect]
     Indication: THYROIDECTOMY
     Dosage: QD  6/WEEK
     Route: 048
     Dates: start: 19980101
  2. SYNTHROID [Suspect]
     Indication: THYROID HORMONE REPLACEMENT THERAPY
  3. HYDROCHLOROTHIAZIDE [Concomitant]
     Indication: HYPERTENSION
     Route: 048
  4. GLUCOSAMINE [Concomitant]
     Indication: DRUG USE FOR UNKNOWN INDICATION
     Dosage: DECL MED INFO
     Route: 048
  5. MULTI-VITAMIN [Concomitant]
     Indication: VITAMIN SUPPLEMENTATION
     Route: 048
  6. FISH OIL CAPSULE [Concomitant]
     Indication: DRUG USE FOR UNKNOWN INDICATION
     Dosage: DECL FURTHER INFO
     Route: 048
  7. CELEBREX [Concomitant]
     Indication: ARTHRITIS
     Route: 048

REACTIONS (1)
  - COELIAC DISEASE [None]
